FAERS Safety Report 21319136 (Version 1)
Quarter: 2022Q3

REPORT INFORMATION
  Report Type: Spontaneous
  Country: US (occurrence: US)
  Receive Date: 20220911
  Receipt Date: 20220911
  Transmission Date: 20221026
  Serious: No
  Sender: FDA-Public Use
  Company Number: US-SANOFI-01254671

PATIENT
  Age: 80 Year
  Sex: Female

DRUGS (4)
  1. SOLIQUA 100/33 [Suspect]
     Active Substance: INSULIN GLARGINE\LIXISENATIDE
     Indication: Diabetes mellitus
     Dosage: 8 IU, QD
     Dates: start: 20220829
  2. HUMULIN 70/30 [Concomitant]
     Active Substance: INSULIN HUMAN
     Dosage: UNK
  3. GLIMEPIRIDE [Concomitant]
     Active Substance: GLIMEPIRIDE
     Dosage: UNK
  4. ONGLYZA [SAXAGLIPTIN HYDROCHLORIDE] [Concomitant]
     Dosage: UNK

REACTIONS (2)
  - Blood glucose increased [Unknown]
  - Off label use [Unknown]
